FAERS Safety Report 10924101 (Version 1)
Quarter: 2015Q1

REPORT INFORMATION
  Report Type: Spontaneous
  Country: US (occurrence: None)
  Receive Date: 20150129
  Receipt Date: 20150129
  Transmission Date: 20150721
  Serious: Yes (Other)
  Sender: FDA-Public Use
  Company Number: 2014004770

PATIENT
  Age: 40 Year
  Sex: Male

DRUGS (1)
  1. KEPPRA [Suspect]
     Active Substance: LEVETIRACETAM

REACTIONS (6)
  - Decreased appetite [None]
  - Mood altered [None]
  - Pain [None]
  - Weight decreased [None]
  - Generalised tonic-clonic seizure [None]
  - Seizure [None]
